FAERS Safety Report 7167901-5 (Version None)
Quarter: 2010Q4

REPORT INFORMATION
  Report Type: 
  Country: None (occurrence: None)
  Receive Date: 20101216
  Receipt Date: 20101130
  Transmission Date: 20110411
  Serious: No
  Sender: FDA-Public Use
  Company Number: US-PFIZER INC-2010161851

PATIENT
  Age: 41 Year
  Sex: Female

DRUGS (3)
  1. LORATADINE AND PSEUDOEPHEDRINE SULFATE [Suspect]
     Dosage: 1 TAB QD
     Route: 048
     Dates: start: 20101129
  2. VITAMIN B-12 [Concomitant]
  3. EXCEDRIN (MIGRAINE) [Concomitant]

REACTIONS (2)
  - DIZZINESS [None]
  - DRUG INEFFECTIVE [None]
